FAERS Safety Report 23475522 (Version 1)
Quarter: 2024Q1

REPORT INFORMATION
  Report Type: Report from Study
  Country: US (occurrence: US)
  Receive Date: 20240204
  Receipt Date: 20240204
  Transmission Date: 20240409
  Serious: No
  Sender: FDA-Public Use
  Company Number: US-EXELIXIS-CABO-23059844

PATIENT
  Age: 75 Year
  Sex: Male

DRUGS (1)
  1. CABOMETYX [Suspect]
     Active Substance: CABOZANTINIB S-MALATE
     Indication: Hepatocellular carcinoma
     Dosage: 40 MG, QD
     Route: 048
     Dates: start: 20230104

REACTIONS (4)
  - Gastrooesophageal reflux disease [Recovering/Resolving]
  - Dysphonia [Not Recovered/Not Resolved]
  - Headache [Unknown]
  - Oral pain [Unknown]

NARRATIVE: CASE EVENT DATE: 20230101
